FAERS Safety Report 9413614 (Version 4)
Quarter: 2013Q3

REPORT INFORMATION
  Report Type: Spontaneous
  Country: US (occurrence: US)
  Receive Date: 20130722
  Receipt Date: 20130910
  Transmission Date: 20140515
  Serious: No
  Sender: FDA-Public Use
  Company Number: US-PFIZER INC-2013210465

PATIENT
  Age: 60 Year
  Sex: Female
  Weight: 109 kg

DRUGS (2)
  1. LEVOXYL [Suspect]
     Indication: HYPOTHYROIDISM
     Dosage: 125 UG, 1X/DAY
     Dates: end: 20130703
  2. LEVOXYL [Suspect]
     Dosage: 125 UG, UNK

REACTIONS (6)
  - Product quality issue [Recovered/Resolved]
  - Blepharospasm [Recovered/Resolved]
  - Thyroid function test abnormal [Recovered/Resolved]
  - Fatigue [Recovered/Resolved]
  - Alopecia [Recovered/Resolved]
  - Expired drug administered [Unknown]
